FAERS Safety Report 6237634-8 (Version None)
Quarter: 2009Q2

REPORT INFORMATION
  Report Type: 
  Country: None (occurrence: None)
  Receive Date: 20090616
  Receipt Date: 20090602
  Transmission Date: 20091009
  Serious: Yes (Death, Life-Threatening)
  Sender: FDA-Public Use
  Company Number: APP200900303

PATIENT
  Age: 60 Year
  Sex: Female

DRUGS (3)
  1. HEPARIN SODIUM INJECTION [Suspect]
     Indication: ANTICOAGULANT THERAPY
     Dosage: 5000 USP UNITS, ONCE, INTRAVENOUS
     Route: 042
     Dates: start: 20090527
  2. HEPARIN SODIUM INJECTION [Suspect]
  3. HEPARIN SODIUM INJECTION [Suspect]

REACTIONS (2)
  - CARDIO-RESPIRATORY ARREST [None]
  - GENERAL PHYSICAL HEALTH DETERIORATION [None]
